FAERS Safety Report 24302342 (Version 1)
Quarter: 2024Q3

REPORT INFORMATION
  Report Type: Spontaneous
  Country: DE (occurrence: DE)
  Receive Date: 20240910
  Receipt Date: 20240910
  Transmission Date: 20241017
  Serious: Yes (Other)
  Sender: TEVA
  Company Number: None

PATIENT
  Age: 46 Year
  Sex: Female
  Weight: 66 kg

DRUGS (5)
  1. PACLITAXEL [Suspect]
     Active Substance: PACLITAXEL
     Indication: Cervix carcinoma
     Dosage: TIME INTERVAL: TOTAL: 140MG PACLITAXEL IN NACL 250ML AT 10:30AM?INFUSION RATE/SPEED: INFUSION IS ...
     Route: 042
     Dates: start: 20240723
  2. PALONOSETRON [Concomitant]
     Active Substance: PALONOSETRON
     Indication: Premedication
     Dosage: TIME INTERVAL: TOTAL: 250UG BOLUS I.V; PALONOSETRON HIKMA
     Route: 042
     Dates: start: 20240723
  3. CLEMASTINE FUMARATE [Concomitant]
     Active Substance: CLEMASTINE FUMARATE
     Indication: Premedication
     Dosage: TIME INTERVAL: TOTAL: TAVEGIL 2MG/2ML BOLUS I.V
     Route: 042
     Dates: start: 20240723
  4. Dexa [Concomitant]
     Indication: Premedication
     Dosage: TIME INTERVAL: TOTAL: DEXA INJEKT JENAPHARM 8MG IN NACL 100ML; DEXA INJECT JENAPHARM
     Route: 065
     Dates: start: 20240723
  5. CARBOPLATIN [Concomitant]
     Active Substance: CARBOPLATIN
     Indication: Product used for unknown indication
     Dosage: CARBOMEDAC 259MG (AUC 2) IN GLUCOSE IN 250ML;
     Route: 065
     Dates: start: 20240723

REACTIONS (3)
  - Throat tightness [Recovered/Resolved]
  - Dyspnoea [Recovered/Resolved]
  - Ear congestion [Recovered/Resolved]

NARRATIVE: CASE EVENT DATE: 20240723
